FAERS Safety Report 8175167-2 (Version None)
Quarter: 2012Q1

REPORT INFORMATION
  Report Type: 
  Country: None (occurrence: None)
  Receive Date: 20120229
  Receipt Date: 20120226
  Transmission Date: 20120608
  Serious: Yes (Hospitalization)
  Sender: FDA-Public Use
  Company Number: PHHO2011PL07789

PATIENT
  Sex: Male
  Weight: 110 kg

DRUGS (2)
  1. FTY [Suspect]
     Dosage: 0.5 MG, QD
     Route: 048
     Dates: start: 20110509
  2. FTY [Suspect]
     Indication: MULTIPLE SCLEROSIS
     Dosage: 0.5 MG, QD
     Route: 048
     Dates: start: 20110329, end: 20110503

REACTIONS (1)
  - RESPIRATORY TRACT INFECTION [None]
